FAERS Safety Report 15881100 (Version 2)
Quarter: 2022Q1

REPORT INFORMATION
  Report Type: Spontaneous
  Country: FR (occurrence: FR)
  Receive Date: 20190128
  Receipt Date: 20220309
  Transmission Date: 20220423
  Serious: Yes (Death)
  Sender: FDA-Public Use
  Company Number: None

PATIENT
  Age: 54 Year
  Sex: Male
  Weight: 97 kg

DRUGS (4)
  1. ALPRAZOLAM [Suspect]
     Active Substance: ALPRAZOLAM
     Indication: Anxiety
     Dosage: 1 MG, 1X/DAY
     Route: 048
     Dates: start: 20181026
  2. CYAMEMAZINE [Suspect]
     Active Substance: CYAMEMAZINE
     Indication: Agitation
     Dosage: 100 MG, 1X/DAY
     Route: 048
     Dates: start: 20181026
  3. RISPERDAL CONSTA [Suspect]
     Active Substance: RISPERIDONE
     Indication: Behaviour disorder
     Dosage: 50 MG, 1X/DAY
     Route: 030
     Dates: start: 20181031, end: 20181031
  4. RISPERDAL [Suspect]
     Active Substance: RISPERIDONE
     Indication: Behaviour disorder
     Dosage: 5 MG, 1X/DAY (SOLUTION DRINKABLE)
     Route: 048
     Dates: start: 20181010

REACTIONS (1)
  - Sudden death [Fatal]

NARRATIVE: CASE EVENT DATE: 20181207
